FAERS Safety Report 11710858 (Version 1)
Quarter: 2015Q4

REPORT INFORMATION
  Report Type: Spontaneous
  Country: US (occurrence: US)
  Receive Date: 20151104
  Receipt Date: 20151104
  Transmission Date: 20160304
  Serious: No
  Sender: FDA-Public Use
  Company Number: US-ELI_LILLY_AND_COMPANY-US201104007017

PATIENT
  Age: 60 Year
  Sex: Male

DRUGS (1)
  1. FORTEO [Suspect]
     Active Substance: TERIPARATIDE
     Indication: OSTEOPOROSIS
     Dosage: UNK, UNKNOWN
     Dates: start: 20110414

REACTIONS (5)
  - Anxiety [Unknown]
  - Dizziness [Unknown]
  - Malaise [Unknown]
  - Limb discomfort [Unknown]
  - Nausea [Unknown]
